FAERS Safety Report 7149962-2 (Version None)
Quarter: 2010Q4

REPORT INFORMATION
  Report Type: 
  Country: None (occurrence: None)
  Receive Date: 20101210
  Receipt Date: 20101201
  Transmission Date: 20110411
  Serious: No
  Sender: FDA-Public Use
  Company Number: US-BIOGENIDEC-2010BI042754

PATIENT
  Sex: Female

DRUGS (3)
  1. AVONEX [Suspect]
     Indication: MULTIPLE SCLEROSIS
     Route: 030
     Dates: start: 20030101
  2. AVONEX [Suspect]
     Route: 030
     Dates: start: 20030101, end: 20030101
  3. AVONEX [Suspect]
     Route: 030
     Dates: start: 19991001, end: 20030101

REACTIONS (7)
  - CONFUSIONAL STATE [None]
  - CRYING [None]
  - EMOTIONAL DISTRESS [None]
  - GAIT DISTURBANCE [None]
  - GASTROENTERITIS VIRAL [None]
  - MEMORY IMPAIRMENT [None]
  - PAIN [None]
